FAERS Safety Report 15830811 (Version 4)
Quarter: 2019Q1

REPORT INFORMATION
  Report Type: Spontaneous
  Country: BR (occurrence: BR)
  Receive Date: 20190116
  Receipt Date: 20190207
  Transmission Date: 20190417
  Serious: Yes (Death, Hospitalization, Other)
  Sender: FDA-Public Use
  Company Number: BR-ABBVIE-19K-020-2624904-00

PATIENT
  Age: 69 Year
  Sex: Male

DRUGS (1)
  1. HUMIRA [Suspect]
     Active Substance: ADALIMUMAB
     Indication: RHEUMATOID ARTHRITIS
     Route: 058
     Dates: start: 201806

REACTIONS (8)
  - Central nervous system lesion [Fatal]
  - Unresponsive to stimuli [Unknown]
  - Fungal infection [Unknown]
  - Vasogenic cerebral oedema [Fatal]
  - Depressed level of consciousness [Unknown]
  - Cerebral fungal infection [Unknown]
  - Cerebral toxoplasmosis [Unknown]
  - Muscular weakness [Unknown]

NARRATIVE: CASE EVENT DATE: 20181220
